FAERS Safety Report 10172083 (Version 1)
Quarter: 2014Q2

REPORT INFORMATION
  Report Type: Spontaneous
  Country: BR (occurrence: BR)
  Receive Date: 20140515
  Receipt Date: 20140515
  Transmission Date: 20141212
  Serious: Yes (Other)
  Sender: FDA-Public Use
  Company Number: BR-009507513-1405BRA005736

PATIENT
  Sex: Female
  Weight: 64 kg

DRUGS (1)
  1. RIBAVIRIN [Suspect]
     Indication: HEPATITIS C
     Dosage: UNK
     Dates: start: 2005, end: 2005

REACTIONS (4)
  - Cholecystectomy [Unknown]
  - Drug ineffective [Unknown]
  - Chronic gastritis [Not Recovered/Not Resolved]
  - Varices oesophageal [Not Recovered/Not Resolved]
